FAERS Safety Report 7767434-9 (Version None)
Quarter: 2011Q3

REPORT INFORMATION
  Report Type: 
  Country: None (occurrence: None)
  Receive Date: 20110922
  Receipt Date: 20100826
  Transmission Date: 20111222
  Serious: No
  Sender: FDA-Public Use
  Company Number: US-ASTRAZENECA-2010SE33688

PATIENT
  Age: 60 Year
  Sex: Female

DRUGS (14)
  1. FISH OIL [Concomitant]
  2. TRIIODO-L-THYRONINE [Concomitant]
  3. SEROQUEL [Suspect]
     Indication: BIPOLAR DISORDER
     Route: 048
     Dates: end: 20100706
  4. SYNTHROID [Concomitant]
  5. VITAMIN D [Concomitant]
  6. LAMICTAL [Concomitant]
  7. LITHIUM CARBONATE [Concomitant]
  8. LISINOPRIL [Concomitant]
  9. TEGRETOL-XR [Concomitant]
  10. MULTI-VITAMIN [Concomitant]
  11. SEROQUEL [Suspect]
     Route: 048
     Dates: start: 20100713
  12. COGENTIN [Concomitant]
  13. SEROQUEL [Suspect]
     Dosage: 600 MG HS AND 200 MG IN AM
     Route: 048
     Dates: start: 20100706, end: 20100713
  14. TEGRETOL [Concomitant]

REACTIONS (3)
  - TARDIVE DYSKINESIA [None]
  - VISION BLURRED [None]
  - SELF-MEDICATION [None]
